FAERS Safety Report 8742790 (Version 2)
Quarter: 2012Q4

REPORT INFORMATION
  Report Type: 
  Country: US (occurrence: US)
  Receive Date: 20120824
  Receipt Date: 20120829
  Transmission Date: 20130627
  Serious: Yes (Hospitalization)
  Sender: FDA-Public Use
  Company Number: US-PERRIGO-12US007033

PATIENT
  Age: 87 None
  Sex: Female
  Weight: 66.67 kg

DRUGS (5)
  1. ACETAMINOPHEN 650MG ER 544 [Suspect]
     Indication: ARTHRITIS
     Dosage: 1300 mg, single
     Route: 048
     Dates: start: 201207, end: 201207
  2. ACETAMINOPHEN 650MG ER 544 [Suspect]
     Dosage: 650 mg, single
     Route: 048
     Dates: start: 20120812, end: 20120812
  3. COUMADIN [Concomitant]
     Indication: ANTICOAGULANT THERAPY
     Dosage: UNK, UNK
     Route: 048
  4. OMEPRAZOLE [Concomitant]
     Indication: DYSPEPSIA
     Dosage: UNK, UNK
     Route: 048
  5. LASIX [Concomitant]
     Indication: DIURETIC THERAPY
     Dosage: UNK, UNK
     Route: 048

REACTIONS (2)
  - Chest pain [Recovered/Resolved]
  - Hypoaesthesia [Recovered/Resolved]
